FAERS Safety Report 10538025 (Version 4)
Quarter: 2015Q1

REPORT INFORMATION
  Report Type: Spontaneous
  Country: US (occurrence: US)
  Receive Date: 20141023
  Receipt Date: 20150204
  Transmission Date: 20150720
  Serious: No
  Sender: FDA-Public Use
  Company Number: US-PFIZER INC-2014289743

PATIENT
  Age: 70 Year
  Sex: Female
  Weight: 101 kg

DRUGS (18)
  1. OMEGA ESSENTIALS [Concomitant]
     Dosage: 1 DF, 2X/DAY
     Route: 048
  2. MIRALAX [Concomitant]
     Active Substance: POLYETHYLENE GLYCOL 3350
     Dosage: 17 G, DAILY
     Route: 048
  3. CELEXA [Concomitant]
     Active Substance: CITALOPRAM HYDROBROMIDE
     Dosage: 40 MG, DAILY
     Route: 048
  4. DIFLUCAN [Suspect]
     Active Substance: FLUCONAZOLE
     Indication: VAGINITIS GARDNERELLA
     Dosage: 200 MG, Q 48H
     Route: 048
     Dates: start: 20140516
  5. DIFLUCAN [Suspect]
     Active Substance: FLUCONAZOLE
     Indication: FUNGAL INFECTION
  6. FOLIC ACID. [Concomitant]
     Active Substance: FOLIC ACID
     Dosage: UNK, DAILY
  7. ANUCORT-HC [Concomitant]
     Active Substance: HYDROCORTISONE ACETATE
     Dosage: 25 MG, 2X/DAY
     Route: 054
  8. IRON [Concomitant]
     Active Substance: IRON
     Dosage: 1 DF, DAILY
     Route: 048
  9. CARVEDILOL. [Concomitant]
     Active Substance: CARVEDILOL
     Dosage: 12.5 MG, 2X/DAY
     Route: 048
  10. CALCIUM 600+D [Concomitant]
     Active Substance: CALCIUM\VITAMIN D
     Dosage: 1 DF, 3X/DAY
     Route: 048
  11. ESTRING [Suspect]
     Active Substance: ESTRADIOL
     Indication: VULVOVAGINAL DRYNESS
     Dosage: UNK
     Route: 067
     Dates: start: 201309, end: 201406
  12. FLAGYL [Suspect]
     Active Substance: METRONIDAZOLE\METRONIDAZOLE HYDROCHLORIDE
     Indication: VAGINITIS GARDNERELLA
     Dosage: UNK, ONCE A DAY
     Dates: start: 20140502
  13. CYMBALTA [Suspect]
     Active Substance: DULOXETINE HYDROCHLORIDE
     Dosage: 30 MG, DAILY
     Route: 048
     Dates: start: 20140514
  14. TERCONAZOLE. [Suspect]
     Active Substance: TERCONAZOLE
     Indication: VAGINITIS GARDNERELLA
     Dosage: UNK
     Dates: start: 20140502
  15. VITAMIN C [Concomitant]
     Active Substance: ASCORBIC ACID
  16. LOSARTAN [Concomitant]
     Active Substance: LOSARTAN
     Dosage: 50 MG, DAILY
     Route: 048
  17. VITAMIN B12 [Concomitant]
     Active Substance: CYANOCOBALAMIN
  18. ZINC [Concomitant]
     Active Substance: ZINC\ZINC CHLORIDE
     Dosage: 140 MG, DAILY
     Route: 048

REACTIONS (7)
  - Lymphadenopathy [Unknown]
  - Anorectal disorder [Recovered/Resolved]
  - Genital erosion [Recovered/Resolved]
  - Rash [Recovered/Resolved]
  - Musculoskeletal discomfort [Unknown]
  - Dermatitis [Recovered/Resolved]
  - Hot flush [Unknown]

NARRATIVE: CASE EVENT DATE: 20140502
